FAERS Safety Report 23413216 (Version 1)
Quarter: 2024Q1

REPORT INFORMATION
  Report Type: Spontaneous
  Country: US (occurrence: US)
  Receive Date: 20240117
  Receipt Date: 20240117
  Transmission Date: 20240410
  Serious: No
  Sender: FDA-Public Use
  Company Number: US-NOVOPROD-1132808

PATIENT
  Age: 55 Year
  Sex: Female

DRUGS (1)
  1. OZEMPIC [Suspect]
     Active Substance: SEMAGLUTIDE
     Indication: Product used for unknown indication
     Dosage: UNK
     Route: 058
     Dates: start: 20231001

REACTIONS (4)
  - Memory impairment [Unknown]
  - Confusional state [Unknown]
  - Drug dose titration not performed [Unknown]
  - Product communication issue [Unknown]

NARRATIVE: CASE EVENT DATE: 20231001
